FAERS Safety Report 9118443 (Version 1)
Quarter: 2013Q1

REPORT INFORMATION
  Report Type: Spontaneous
  Country: US (occurrence: US)
  Receive Date: 20130219
  Receipt Date: 20130219
  Transmission Date: 20140127
  Serious: Yes (Other)
  Sender: FDA-Public Use
  Company Number: US-BRISTOL-MYERS SQUIBB COMPANY-17162363

PATIENT
  Age: 65 Year
  Sex: Male
  Weight: 122.45 kg

DRUGS (13)
  1. ORENCIA [Suspect]
     Indication: RHEUMATOID ARTHRITIS
     Route: 058
     Dates: start: 20121008
  2. METHOTREXATE [Suspect]
  3. PREDNISONE [Suspect]
  4. PLAVIX [Concomitant]
  5. ACETYLSALICYLIC ACID [Concomitant]
  6. FOLIC ACID [Concomitant]
  7. LOTENSIN [Concomitant]
  8. TRAMADOL [Concomitant]
  9. VITAMIN C [Concomitant]
  10. TERAZOSIN [Concomitant]
  11. FISH OIL [Concomitant]
  12. NIACIN [Concomitant]
  13. COENZYME-Q10 [Concomitant]

REACTIONS (1)
  - Pneumonia [Recovering/Resolving]
